FAERS Safety Report 24007332 (Version 1)
Quarter: 2024Q2

REPORT INFORMATION
  Report Type: Spontaneous
  Country: ES (occurrence: ES)
  Receive Date: 20240624
  Receipt Date: 20240624
  Transmission Date: 20240715
  Serious: Yes (Other)
  Sender: FDA-Public Use
  Company Number: ES-ASTELLAS-2023US011312

PATIENT
  Age: 72 Year
  Sex: Male

DRUGS (9)
  1. VENETOCLAX [Suspect]
     Active Substance: VENETOCLAX
     Indication: Acute myeloid leukaemia recurrent
     Dosage: 400 MG, ONCE DAILY (4TH LINE, 1ST CYCLE, 14 DAYS)
     Route: 048
     Dates: start: 20230425
  2. VENETOCLAX [Suspect]
     Active Substance: VENETOCLAX
     Indication: Acute myeloid leukaemia recurrent
     Dosage: 400 MG, ONCE DAILY (4TH LINE, 1ST CYCLE, 28 DAYS)
     Route: 048
     Dates: start: 20230327
  3. GILTERITINIB [Suspect]
     Active Substance: GILTERITINIB
     Indication: FLT3 gene mutation
     Dosage: 80 MG, ONCE DAILY (DOSE REDUCED, 3 DAYS OF GILTERITINIB, 4TH LINE), LAST ADMIN DATE-2023
     Route: 065
     Dates: start: 20230403
  4. GILTERITINIB [Suspect]
     Active Substance: GILTERITINIB
     Indication: FLT3 gene mutation
     Dosage: UNK UNK, UNKNOWN FREQ. (1ST CYCLE)
     Route: 065
     Dates: start: 20230327
  5. GILTERITINIB [Suspect]
     Active Substance: GILTERITINIB
     Indication: FLT3 gene mutation
     Dosage: UNK UNK, UNKNOWN FREQ., FIRST ADMIN DATE-2023
     Route: 065
  6. AZACITIDINE [Suspect]
     Active Substance: AZACITIDINE
     Indication: FLT3 gene mutation
     Dosage: UNK UNK, ONCE DAILY (1ST CYCLE X 7 DAYS)
     Route: 058
     Dates: start: 20230327
  7. AZACITIDINE [Suspect]
     Active Substance: AZACITIDINE
     Indication: FLT3 gene mutation
     Dosage: UNK UNK, UNKNOWN FREQ., FIRST ADMIN DATE-2023
     Route: 065
  8. AZACITIDINE [Suspect]
     Active Substance: AZACITIDINE
     Indication: FLT3 gene mutation
     Dosage: UNK UNK, UNKNOWN FREQ. (SECOND CYCLE X 5 DAYS)
     Route: 065
     Dates: start: 20230425
  9. MIDOSTAURIN [Concomitant]
     Active Substance: MIDOSTAURIN
     Indication: FLT3 gene mutation
     Dosage: UNK UNK, UNKNOWN FREQ.
     Route: 065

REACTIONS (6)
  - Thrombocytopenia [Recovering/Resolving]
  - Cytopenia [Recovering/Resolving]
  - Off label use [Recovered/Resolved]
  - Monocytosis [Recovering/Resolving]
  - Leukocytosis [Recovered/Resolved]
  - Product use issue [Recovered/Resolved]

NARRATIVE: CASE EVENT DATE: 20230327
